FAERS Safety Report 12610441 (Version 2)
Quarter: 2016Q3

REPORT INFORMATION
  Report Type: Spontaneous
  Country: FR (occurrence: FR)
  Receive Date: 20160801
  Receipt Date: 20160912
  Transmission Date: 20161109
  Serious: Yes (Other)
  Sender: FDA-Public Use
  Company Number: FR-009507513-1501FRA007361

PATIENT
  Age: 59 Year
  Sex: Female
  Weight: 59 kg

DRUGS (4)
  1. AOTAL [Concomitant]
     Active Substance: ACAMPROSATE CALCIUM
     Indication: DEPRESSION
     Dosage: 333MG, 2 TABLETS BID
     Route: 048
  2. IMPLANON [Suspect]
     Active Substance: ETONOGESTREL
     Indication: CONTRACEPTION
     Dosage: UNK
     Route: 059
     Dates: start: 20060404
  3. ZOLOFT [Concomitant]
     Active Substance: SERTRALINE HYDROCHLORIDE
     Indication: DEPRESSION
     Dosage: 50MG, 1/2 TABLET TID
     Route: 048
  4. TIAPRIDAL [Concomitant]
     Active Substance: TIAPRIDE HYDROCHLORIDE
     Indication: DEPRESSION
     Dosage: 100MG, 1/2 TABLET BID
     Route: 048

REACTIONS (11)
  - Depression [Unknown]
  - Incorrect drug administration duration [Unknown]
  - Fatigue [Unknown]
  - Irritability [Unknown]
  - Vomiting [Unknown]
  - Sensation of foreign body [Unknown]
  - Nausea [Unknown]
  - Vaginal infection [Unknown]
  - Skin infection [Unknown]
  - Complication associated with device [Recovered/Resolved]
  - Cervix cautery [Unknown]

NARRATIVE: CASE EVENT DATE: 20150403
